FAERS Safety Report 4897122-8 (Version None)
Quarter: 2005Q4

REPORT INFORMATION
  Report Type: 
  Country: None (occurrence: None)
  Receive Date: 20051228
  Receipt Date: 20050309
  Transmission Date: 20060501
  Serious: Yes (Hospitalization, Other)
  Sender: FDA-Public Use
  Company Number: USA050392770

PATIENT
  Age: 59 Year
  Sex: Male
  Weight: 74 kg

DRUGS (4)
  1. ILETIN-PORK NPH INSULIN (INSULIN, ANIMAL) [Suspect]
     Dates: start: 19910101, end: 20050304
  2. ILETIN-PORK REGULAR INSULIN (INSULIN, ANIMAL) [Suspect]
     Dates: start: 20000101, end: 20050304
  3. INSULIN [Suspect]
  4. HUMULIN 70/30 [Suspect]
     Dosage: 25 U/2 DAY
     Dates: start: 20050304

REACTIONS (7)
  - BLOOD GLUCOSE INCREASED [None]
  - CEREBROVASCULAR ACCIDENT [None]
  - DEFORMITY [None]
  - DIFFICULTY IN WALKING [None]
  - EYE DISORDER [None]
  - GAIT DISTURBANCE [None]
  - WEIGHT INCREASED [None]
